FAERS Safety Report 4924415-8 (Version None)
Quarter: 2006Q1

REPORT INFORMATION
  Report Type: 
  Country: None (occurrence: None)
  Receive Date: 20060227
  Receipt Date: 20060215
  Transmission Date: 20060701
  Serious: Yes (Hospitalization)
  Sender: FDA-Public Use
  Company Number: FR-ROCHE-436636

PATIENT
  Age: 30 Year
  Sex: Male

DRUGS (9)
  1. CLONAZEPAM [Suspect]
     Indication: EPILEPSY
     Dosage: OVERDOSE THERAPY.
     Route: 048
  2. CLONAZEPAM [Suspect]
     Route: 048
  3. GARDENAL [Suspect]
     Indication: EPILEPSY
     Dosage: OVERDOSE THERAPY.
     Route: 048
  4. GARDENAL [Suspect]
     Route: 048
  5. TEGRETOL [Suspect]
     Indication: EPILEPSY
     Dosage: OVERDOSE THERAPY.
     Route: 048
  6. TEGRETOL [Suspect]
     Route: 048
  7. TEGRETOL [Suspect]
     Route: 048
  8. KEPPRA [Suspect]
     Indication: EPILEPSY
     Dosage: OVERDOSE THERAPY.
     Route: 048
  9. KEPPRA [Suspect]
     Route: 048

REACTIONS (2)
  - ASTHENIA [None]
  - OVERDOSE [None]
